FAERS Safety Report 9102813 (Version 1)
Quarter: 2013Q1

REPORT INFORMATION
  Report Type: Spontaneous
  Country: CH (occurrence: CH)
  Receive Date: 20130218
  Receipt Date: 20130218
  Transmission Date: 20140127
  Serious: Yes (Disabling, Other)
  Sender: FDA-Public Use
  Company Number: CH-ROCHE-1190895

PATIENT
  Age: 43 Year
  Sex: Female

DRUGS (4)
  1. HERCEPTIN [Suspect]
     Indication: BREAST CANCER METASTATIC
     Route: 041
     Dates: start: 200903, end: 20130117
  2. TAXOTERE [Concomitant]
     Route: 065
     Dates: start: 200810, end: 200902
  3. ADRIBLASTIN [Concomitant]
     Route: 041
     Dates: start: 200810, end: 200902
  4. CYCLOPHOSPHAMIDE [Concomitant]
     Route: 041
     Dates: start: 200810, end: 200902

REACTIONS (1)
  - Optic neuritis [Not Recovered/Not Resolved]
